FAERS Safety Report 10108986 (Version 1)
Quarter: 2014Q2

REPORT INFORMATION
  Report Type: Spontaneous
  Country: US (occurrence: US)
  Receive Date: 20140425
  Receipt Date: 20140425
  Transmission Date: 20141212
  Serious: Yes (Other)
  Sender: FDA-Public Use
  Company Number: US-BAYER-2014-059643

PATIENT
  Age: 31 Year
  Sex: Female

DRUGS (7)
  1. YAZ [Suspect]
  2. YASMIN [Suspect]
  3. TORADOL [Concomitant]
     Indication: PAIN
     Dosage: 30 MG, UNK
     Route: 042
  4. DILAUDID [Concomitant]
     Indication: PAIN
     Dosage: 1 MG, UNK
  5. LEVAQUIN [Concomitant]
     Indication: PNEUMONIA
     Dosage: 500 MG, DAILY FOR 10 DAYS
  6. LORTAB [Concomitant]
     Indication: PAIN
     Dosage: AS NEEDED
  7. MICRONOR [Concomitant]

REACTIONS (2)
  - Deep vein thrombosis [Recovered/Resolved]
  - Pulmonary embolism [Recovered/Resolved]
